FAERS Safety Report 25104081 (Version 2)
Quarter: 2025Q3

REPORT INFORMATION
  Report Type: Spontaneous
  Country: BR (occurrence: BR)
  Receive Date: 20250321
  Receipt Date: 20250811
  Transmission Date: 20251020
  Serious: Yes (Death, Other)
  Sender: ROCHE
  Company Number: BR-ROCHE-10000230021

PATIENT
  Age: 67 Year
  Sex: Male

DRUGS (6)
  1. BEVACIZUMAB [Suspect]
     Active Substance: BEVACIZUMAB
     Indication: Hepatocellular carcinoma
     Route: 065
  2. ATEZOLIZUMAB [Suspect]
     Active Substance: ATEZOLIZUMAB
     Indication: Hepatocellular carcinoma
     Route: 065
  3. LENVATINIB [Concomitant]
     Active Substance: LENVATINIB
     Indication: Hepatocellular carcinoma
  4. NIVOLUMAB [Concomitant]
     Active Substance: NIVOLUMAB
     Indication: Hepatocellular carcinoma
  5. NELVUTAMIG [Concomitant]
     Active Substance: NELVUTAMIG
     Indication: Hepatocellular carcinoma
  6. SORAFENIB [Concomitant]
     Active Substance: SORAFENIB

REACTIONS (13)
  - Neoplasm [Unknown]
  - Abdominal pain [Unknown]
  - Performance status decreased [Unknown]
  - Alanine aminotransferase increased [Unknown]
  - Aspartate aminotransferase increased [Unknown]
  - Hepatic failure [Fatal]
  - Pneumonitis [Unknown]
  - Nephrolithiasis [Unknown]
  - Hernia [Unknown]
  - Diverticulum intestinal [Unknown]
  - Degenerative bone disease [Unknown]
  - Ascites [Unknown]
  - Weight increased [Unknown]
